FAERS Safety Report 15838631 (Version 2)
Quarter: 2022Q3

REPORT INFORMATION
  Report Type: Report from Study
  Country: US (occurrence: US)
  Receive Date: 20190117
  Receipt Date: 20220922
  Transmission Date: 20221026
  Serious: Yes (Other)
  Sender: FDA-Public Use
  Company Number: US-TEVA-2019-US-997362

PATIENT

DRUGS (1)
  1. BUPRENORPHINE\NALOXONE [Suspect]
     Active Substance: BUPRENORPHINE\NALOXONE
     Indication: Product used for unknown indication
     Dosage: INADVERTENT INTRA-ARTERIAL INJECTION OF SUBLINGUAL FORM OF BUPRENORPHINE/NALOXONE
     Route: 013

REACTIONS (4)
  - Peripheral ischaemia [Unknown]
  - Tissue injury [Unknown]
  - Incorrect route of product administration [Unknown]
  - Drug abuse [Unknown]
